FAERS Safety Report 14420089 (Version 1)
Quarter: 2018Q1

REPORT INFORMATION
  Report Type: Spontaneous
  Country: US (occurrence: US)
  Receive Date: 20180122
  Receipt Date: 20180122
  Transmission Date: 20180509
  Serious: Yes (Other)
  Sender: FDA-Public Use
  Company Number: US-ROCHE-1863353

PATIENT
  Age: 40 Year
  Sex: Male

DRUGS (3)
  1. EPINEPHRINE. [Concomitant]
     Active Substance: EPINEPHRINE
     Indication: SWOLLEN TONGUE
  2. RITUXAN [Suspect]
     Active Substance: RITUXIMAB
     Indication: MULTIPLE SCLEROSIS
     Dosage: 10 PERCENT OF INFUSION GIVEN ON 28 NOV 2016
     Route: 042
     Dates: start: 20161128, end: 20161128
  3. EPINEPHRINE. [Concomitant]
     Active Substance: EPINEPHRINE
     Indication: THROAT TIGHTNESS
     Dosage: ONE DOSE GIVEN ;ONGOING: NO
     Route: 065
     Dates: start: 20161128, end: 20161128

REACTIONS (2)
  - Swollen tongue [Recovered/Resolved]
  - Throat tightness [Recovered/Resolved]

NARRATIVE: CASE EVENT DATE: 20161128
